FAERS Safety Report 11520672 (Version 1)
Quarter: 2015Q3

REPORT INFORMATION
  Report Type: Spontaneous
  Country: US (occurrence: US)
  Receive Date: 20150918
  Receipt Date: 20150918
  Transmission Date: 20151125
  Serious: Yes (Death)
  Sender: FDA-Public Use
  Company Number: US-PFIZER INC-2015251756

PATIENT
  Age: 60 Year
  Sex: Male
  Weight: 54 kg

DRUGS (2)
  1. INLYTA [Suspect]
     Active Substance: AXITINIB
     Indication: RENAL CANCER
     Dosage: 5 MG, 2X/DAY
     Route: 048
     Dates: start: 201507
  2. INLYTA [Suspect]
     Active Substance: AXITINIB
     Dosage: 6 MG, 2X/DAY
     Route: 048
     Dates: start: 201507, end: 20150820

REACTIONS (7)
  - Weight decreased [Unknown]
  - Vomiting [Unknown]
  - Nausea [Unknown]
  - Disease progression [Fatal]
  - Feeding disorder [Unknown]
  - Renal cancer [Fatal]
  - Dysphagia [Unknown]
